FAERS Safety Report 24405444 (Version 2)
Quarter: 2024Q4

REPORT INFORMATION
  Report Type: Spontaneous
  Country: TH (occurrence: TH)
  Receive Date: 20241007
  Receipt Date: 20241011
  Transmission Date: 20250115
  Serious: Yes (Other)
  Sender: BAXTER
  Company Number: TH-BAXTER-2024BAX025296

PATIENT
  Age: 71 Year
  Sex: Female

DRUGS (1)
  1. TISSEEL FIBRIN SEALANT [Suspect]
     Active Substance: FIBRINOGEN HUMAN\THROMBIN HUMAN
     Dosage: 1 UNIT OF  TISSEEL,VHSD, FROZEN, PRIMA, 4ML
     Route: 065
     Dates: start: 20240921, end: 20240921

REACTIONS (3)
  - Drug ineffective [Unknown]
  - Product colour issue [Unknown]
  - Product physical issue [Unknown]

NARRATIVE: CASE EVENT DATE: 20240921
